FAERS Safety Report 11362289 (Version 1)
Quarter: 2015Q3

REPORT INFORMATION
  Report Type: Spontaneous
  Country: DE (occurrence: DE)
  Receive Date: 20150810
  Receipt Date: 20150810
  Transmission Date: 20151125
  Serious: Yes (Death)
  Sender: FDA-Public Use
  Company Number: DE-B.I. PHARMACEUTICALS,INC./RIDGEFIELD-2015-BI-43108DE

PATIENT
  Age: 77 Year
  Sex: Female
  Weight: 70 kg

DRUGS (8)
  1. PANTOPRAZOLE SODIUM. [Concomitant]
     Active Substance: PANTOPRAZOLE SODIUM
     Indication: PRODUCT USED FOR UNKNOWN INDICATION
     Dosage: 20 MG
     Route: 048
  2. IRBESARTAN. [Concomitant]
     Active Substance: IRBESARTAN
     Indication: HYPERTENSION
     Dosage: 200 MG
     Route: 048
  3. METOPROLOL [Concomitant]
     Active Substance: METOPROLOL
     Indication: HYPERTENSION
     Dosage: 150 MG
     Route: 048
  4. HCT [Concomitant]
     Active Substance: HYDROCHLOROTHIAZIDE
     Indication: HYPERTENSION
     Dosage: 12.5 MG
     Route: 048
  5. OXYCODON [Concomitant]
     Active Substance: OXYCODONE
     Indication: PAIN
     Dosage: 90 MG
     Route: 048
  6. PRADAXA [Suspect]
     Active Substance: DABIGATRAN ETEXILATE MESYLATE
     Indication: ATRIAL FIBRILLATION
     Dosage: 110 MG
     Route: 048
  7. AMITRIPTYLIN [Concomitant]
     Active Substance: AMITRIPTYLINE
     Indication: PAIN
     Dosage: 25 MG
     Route: 048
  8. LERCANIDIPIN [Concomitant]
     Indication: HYPERTENSION
     Dosage: 10 MG
     Route: 048

REACTIONS (5)
  - Cerebral haemorrhage [Fatal]
  - Fall [Fatal]
  - Condition aggravated [Fatal]
  - Coma [Fatal]
  - Loss of consciousness [Fatal]

NARRATIVE: CASE EVENT DATE: 20150716
